FAERS Safety Report 5639533-9 (Version None)
Quarter: 2008Q1

REPORT INFORMATION
  Report Type: 
  Country: None (occurrence: None)
  Receive Date: 20080226
  Receipt Date: 20080219
  Transmission Date: 20080703
  Serious: Yes (Life-Threatening)
  Sender: FDA-Public Use
  Company Number: FR-PFIZER INC-2008015873

PATIENT
  Sex: Female
  Weight: 20 kg

DRUGS (2)
  1. SOLU-MEDROL [Suspect]
     Indication: AUTOIMMUNE HEPATITIS
     Route: 042
  2. CELLCEPT [Suspect]
     Indication: AUTOIMMUNE HEPATITIS
     Route: 042

REACTIONS (2)
  - SMALL INTESTINAL PERFORATION [None]
  - STAPHYLOCOCCAL SEPSIS [None]
